FAERS Safety Report 16688257 (Version 1)
Quarter: 2019Q3

REPORT INFORMATION
  Report Type: Spontaneous
  Country: US (occurrence: US)
  Receive Date: 20190809
  Receipt Date: 20190809
  Transmission Date: 20191004
  Serious: Yes (Death, Hospitalization, Other)
  Sender: FDA-Public Use
  Company Number: US-JNJFOC-20190806468

PATIENT
  Age: 22 Month
  Sex: Female

DRUGS (2)
  1. DOXIL [Suspect]
     Active Substance: DOXORUBICIN HYDROCHLORIDE
     Indication: METASTATIC NEOPLASM
     Route: 042
  2. DOXIL [Suspect]
     Active Substance: DOXORUBICIN HYDROCHLORIDE
     Indication: ATYPICAL TERATOID/RHABDOID TUMOUR OF CNS
     Dosage: ; CYCLICAL
     Route: 042

REACTIONS (9)
  - Brain oedema [Fatal]
  - Arrhythmia [Fatal]
  - Off label use [Unknown]
  - Acute respiratory failure [Fatal]
  - Seizure [Fatal]
  - Tumour lysis syndrome [Fatal]
  - Brain herniation [Fatal]
  - Product use in unapproved indication [Unknown]
  - Hyponatraemia [Fatal]
